FAERS Safety Report 7413429-4 (Version None)
Quarter: 2011Q2

REPORT INFORMATION
  Report Type: 
  Country: None (occurrence: None)
  Receive Date: 20110413
  Receipt Date: 20110407
  Transmission Date: 20111010
  Serious: Yes (Disabling, Other)
  Sender: FDA-Public Use
  Company Number: US-ELI_LILLY_AND_COMPANY-US201104002330

PATIENT
  Age: 90 Year
  Sex: Female

DRUGS (5)
  1. HUMALOG MIX 75/25 [Suspect]
     Dosage: 15 U, OTHER
  2. HUMALOG MIX 75/25 [Suspect]
     Dosage: 25 U, EACH MORNING
  3. INSULIN [Concomitant]
     Dosage: UNK
  4. HUMALOG MIX 75/25 [Suspect]
     Indication: DIABETES MELLITUS
     Dosage: 25 U, EACH MORNING
  5. HUMALOG MIX 75/25 [Suspect]
     Dosage: 15 U, OTHER

REACTIONS (5)
  - CEREBROVASCULAR ACCIDENT [None]
  - WALKING AID USER [None]
  - TRANSIENT ISCHAEMIC ATTACK [None]
  - WHEELCHAIR USER [None]
  - ARTERIAL DISORDER [None]
